FAERS Safety Report 17097823 (Version 1)
Quarter: 2019Q4

REPORT INFORMATION
  Report Type: Report from Study
  Country: MX (occurrence: MX)
  Receive Date: 20191202
  Receipt Date: 20191202
  Transmission Date: 20200122
  Serious: Yes (Death)
  Sender: FDA-Public Use
  Company Number: MX-PFIZER INC-2019520006

PATIENT
  Age: 62 Year
  Sex: Female
  Weight: 71 kg

DRUGS (2)
  1. PALBOCICLIB [Suspect]
     Active Substance: PALBOCICLIB
     Indication: BREAST CANCER
     Dosage: 125 MG, FOR 21 DAYS
     Dates: start: 20180410
  2. LETROZOL [Concomitant]
     Active Substance: LETROZOLE
     Indication: BREAST CANCER
     Dosage: 2.5 UNK, UNK
     Dates: start: 20180410

REACTIONS (1)
  - Death [Fatal]
